FAERS Safety Report 4334042-1 (Version None)
Quarter: 2004Q1

REPORT INFORMATION
  Report Type: 
  Country: None (occurrence: None)
  Receive Date: 20040329
  Receipt Date: 20031219
  Transmission Date: 20041129
  Serious: No
  Sender: FDA-Public Use
  Company Number: 03P-163-0245429-00

PATIENT
  Sex: Female

DRUGS (7)
  1. HUMIRA [Suspect]
     Indication: RHEUMATOID ARTHRITIS
     Dosage: 40 MG, 1 IN 2 WK, SUBCUTANEOUS
     Route: 058
     Dates: start: 20030101
  2. TRILISATE [Concomitant]
  3. METHOTREXATE [Concomitant]
  4. LEUCOVORIN CALCIUM [Concomitant]
  5. FOLIC ACID [Concomitant]
  6. CALCIUM [Concomitant]
  7. COLCHICINE [Concomitant]

REACTIONS (5)
  - ARTHRALGIA [None]
  - CHROMATURIA [None]
  - CONDITION AGGRAVATED [None]
  - NAUSEA [None]
  - STOMACH DISCOMFORT [None]
